FAERS Safety Report 6723600-2 (Version None)
Quarter: 2010Q2

REPORT INFORMATION
  Report Type: 
  Country: None (occurrence: None)
  Receive Date: 20100513
  Receipt Date: 20100503
  Transmission Date: 20101027
  Serious: Yes (Death)
  Sender: FDA-Public Use
  Company Number: CH-NOVOPROD-272618

PATIENT
  Age: 58 Year
  Sex: Male
  Weight: 85 kg

DRUGS (2)
  1. NOVOSEVEN [Suspect]
     Indication: HAEMORRHAGE
     Dosage: 7.2 MG BOLUS
     Dates: start: 20080101, end: 20080101
  2. BERIPLEX [Concomitant]
     Indication: HAEMORRHAGE
     Dosage: UNK
     Dates: end: 20080101

REACTIONS (1)
  - ATRIAL THROMBOSIS [None]
